FAERS Safety Report 6690099-4 (Version None)
Quarter: 2010Q2

REPORT INFORMATION
  Report Type: 
  Country: None (occurrence: None)
  Receive Date: 20100421
  Receipt Date: 20100412
  Transmission Date: 20101027
  Serious: Yes (Death)
  Sender: FDA-Public Use
  Company Number: US-JNJFOC-20100403494

PATIENT
  Age: 62 Year
  Sex: Female

DRUGS (2)
  1. REOPRO [Suspect]
     Indication: CATHETERISATION CARDIAC
  2. HEPARIN [Concomitant]
     Indication: DRUG USE FOR UNKNOWN INDICATION

REACTIONS (1)
  - RETROPERITONEAL HAEMORRHAGE [None]
